FAERS Safety Report 12599731 (Version 1)
Quarter: 2016Q3

REPORT INFORMATION
  Report Type: Spontaneous
  Country: US (occurrence: US)
  Receive Date: 20160727
  Receipt Date: 20160727
  Transmission Date: 20161109
  Serious: No
  Sender: FDA-Public Use
  Company Number: US-SA-2016SA116538

PATIENT
  Sex: Male

DRUGS (9)
  1. TIKOSYN [Concomitant]
     Active Substance: DOFETILIDE
     Route: 048
  2. AMBIEN [Suspect]
     Active Substance: ZOLPIDEM TARTRATE
     Indication: INSOMNIA
     Route: 065
  3. ATORVASTATIN [Concomitant]
     Active Substance: ATORVASTATIN
  4. LOSARTAN. [Concomitant]
     Active Substance: LOSARTAN
  5. PANTOPRAZOLE [Concomitant]
     Active Substance: PANTOPRAZOLE SODIUM
  6. XARELTO [Concomitant]
     Active Substance: RIVAROXABAN
  7. COUMADIN [Concomitant]
     Active Substance: WARFARIN SODIUM
  8. AMIODARONE [Concomitant]
     Active Substance: AMIODARONE
     Indication: ATRIAL FIBRILLATION
  9. AMIODARONE [Concomitant]
     Active Substance: AMIODARONE
     Indication: VENTRICULAR TACHYCARDIA

REACTIONS (3)
  - Insomnia [Unknown]
  - Feeling abnormal [Unknown]
  - Drug ineffective [Unknown]
